FAERS Safety Report 8200343-X (Version None)
Quarter: 2012Q1

REPORT INFORMATION
  Report Type: 
  Country: None (occurrence: None)
  Receive Date: 20120306
  Receipt Date: 20120227
  Transmission Date: 20120608
  Serious: Yes (Hospitalization)
  Sender: FDA-Public Use
  Company Number: AUR-APL-2012-01154

PATIENT
  Age: 81 Year
  Sex: Female

DRUGS (8)
  1. IMODIUM [Concomitant]
  2. CALCIUM CARBONATE [Concomitant]
  3. CITALOPRAM HYDROBROMIDE [Concomitant]
  4. ACYCLOVIR [Suspect]
     Indication: HERPES ZOSTER
     Dosage: INTRAVENOUS DRIP
     Route: 041
  5. LANSOPRAZOLE [Concomitant]
  6. ALENDRONIC ACID (ALENDRONIC ACID) [Concomitant]
  7. GABAPENTIN [Suspect]
     Indication: PAIN
     Dosage: UNKNOWN
  8. MIRTAZAPINE [Concomitant]

REACTIONS (7)
  - CEREBROVASCULAR ACCIDENT [None]
  - GENERAL PHYSICAL HEALTH DETERIORATION [None]
  - EPISTAXIS [None]
  - APHASIA [None]
  - HALLUCINATION [None]
  - HERPES ZOSTER [None]
  - NIGHTMARE [None]
